FAERS Safety Report 9869840 (Version 1)
Quarter: 2014Q1

REPORT INFORMATION
  Report Type: Spontaneous
  Country: US (occurrence: US)
  Receive Date: 20140205
  Receipt Date: 20140205
  Transmission Date: 20141002
  Serious: Yes (Other)
  Sender: FDA-Public Use
  Company Number: US-ELI_LILLY_AND_COMPANY-US201401010134

PATIENT
  Sex: Female

DRUGS (2)
  1. FORTEO [Suspect]
     Indication: OSTEOPOROSIS
     Route: 065
  2. FORTEO [Suspect]
     Dosage: UNK, QD
     Route: 065
     Dates: start: 201311

REACTIONS (3)
  - Throat tightness [Unknown]
  - Chest pain [Unknown]
  - Back pain [Unknown]
